FAERS Safety Report 6310293-1 (Version None)
Quarter: 2009Q3

REPORT INFORMATION
  Report Type: 
  Country: None (occurrence: None)
  Receive Date: 20090811
  Receipt Date: 20090728
  Transmission Date: 20100115
  Serious: Yes (Hospitalization)
  Sender: FDA-Public Use
  Company Number: KV200800141

PATIENT
  Age: 68 Year
  Sex: Male
  Weight: 79.4 kg

DRUGS (13)
  1. MORPHINE SULFATE [Suspect]
     Indication: PAIN MANAGEMENT
     Dosage: 30 MG, BID, ORAL
     Route: 048
     Dates: start: 20080509, end: 20080512
  2. METOPROLOL SUCCINATE [Concomitant]
  3. AMLODIPINE [Concomitant]
  4. SIMVASTATIN [Concomitant]
  5. CLONIDINE [Concomitant]
  6. LISINOPRIL [Concomitant]
  7. ASPIRIN [Concomitant]
  8. PAROXETINE HCL [Concomitant]
  9. PANTOPRAZOLE SODIUM [Concomitant]
  10. OXYCODONE HCL [Concomitant]
  11. VANCOMYCIN [Concomitant]
  12. INVANZ (ERTAPENEM SODIUM) [Concomitant]
  13. OXYCODONE HCL [Concomitant]

REACTIONS (5)
  - CONFUSIONAL STATE [None]
  - HALLUCINATION [None]
  - LETHARGY [None]
  - PRODUCT QUALITY ISSUE [None]
  - TRANSIENT ISCHAEMIC ATTACK [None]
